FAERS Safety Report 13018018 (Version 3)
Quarter: 2018Q2

REPORT INFORMATION
  Report Type: Spontaneous
  Country: CZ (occurrence: CZ)
  Receive Date: 20161212
  Receipt Date: 20180624
  Transmission Date: 20180711
  Serious: Yes (Hospitalization, Other)
  Sender: FDA-Public Use
  Company Number: CZ-BRISTOL-MYERS SQUIBB COMPANY-BMS-2016-102501

PATIENT
  Age: 29 Year
  Sex: Female

DRUGS (7)
  1. HEPARIN [Suspect]
     Active Substance: HEPARIN SODIUM
     Indication: ANTICOAGULANT THERAPY
     Route: 065
  2. ENOXAPARIN [Suspect]
     Active Substance: ENOXAPARIN
     Indication: ANTICOAGULANT THERAPY
     Dosage: UNK UNK, Q12H
     Route: 058
  3. ALTEPLASE. [Suspect]
     Active Substance: ALTEPLASE
     Indication: ANTICOAGULANT THERAPY
     Dosage: 10 MG, UNK
     Route: 065
  4. WARFARIN SODIUM. [Suspect]
     Active Substance: WARFARIN SODIUM
     Indication: ANTICOAGULANT THERAPY
     Route: 065
  5. ENOXAPARIN [Suspect]
     Active Substance: ENOXAPARIN
     Indication: PRODUCT USED FOR UNKNOWN INDICATION
     Dosage: 1 DF, Q12H
     Route: 058
  6. ALTEPLASE. [Suspect]
     Active Substance: ALTEPLASE
     Indication: PRODUCT USED FOR UNKNOWN INDICATION
     Dosage: 1 DF, UNK
     Route: 065
  7. NADROPARIN [Suspect]
     Active Substance: NADROPARIN
     Indication: ANTICOAGULANT THERAPY
     Dosage: 1 DF, UNK
     Route: 065

REACTIONS (13)
  - Epistaxis [Unknown]
  - Thrombolysis [Unknown]
  - Echocardiogram abnormal [Unknown]
  - Prosthetic cardiac valve thrombosis [Unknown]
  - Pleural effusion [Unknown]
  - Renal embolism [Unknown]
  - Cerebral ischaemia [Unknown]
  - Pulmonary congestion [Unknown]
  - Postpartum haemorrhage [Unknown]
  - Pulmonary hypertension [Unknown]
  - Ischaemic stroke [Unknown]
  - Abortion induced [Unknown]
  - Maternal exposure during pregnancy [Recovered/Resolved]
